FAERS Safety Report 4753861-0 (Version None)
Quarter: 2005Q3

REPORT INFORMATION
  Report Type: 
  Country: None (occurrence: None)
  Receive Date: 20050826
  Receipt Date: 20050624
  Transmission Date: 20060218
  Serious: Yes (Hospitalization)
  Sender: FDA-Public Use
  Company Number: FR-GLAXOSMITHKLINE-B0386801A

PATIENT
  Age: 80 Year
  Sex: Male
  Weight: 93 kg

DRUGS (8)
  1. AUGMENTIN '125' [Suspect]
     Indication: DYSPNOEA
     Route: 048
     Dates: start: 20050419, end: 20050427
  2. ZECLAR 500 MG [Suspect]
     Indication: DYSPNOEA
     Route: 048
     Dates: start: 20050421, end: 20050427
  3. NEBILOX [Suspect]
     Dosage: 1UNIT PER DAY
     Route: 048
     Dates: start: 20050323, end: 20050427
  4. APROVEL [Concomitant]
     Dosage: 1UNIT PER DAY
     Route: 048
  5. ELISOR [Concomitant]
     Dosage: 1UNIT PER DAY
     Route: 048
     Dates: end: 20050423
  6. KARDEGIC [Concomitant]
     Route: 065
  7. LASILIX [Concomitant]
     Route: 065
  8. INSULATARD NPH HUMAN [Concomitant]
     Route: 065

REACTIONS (7)
  - DYSPNOEA [None]
  - HENOCH-SCHONLEIN PURPURA [None]
  - LEUKOCYTOCLASTIC VASCULITIS [None]
  - LUNG CREPITATION [None]
  - PURPURA [None]
  - RASH [None]
  - RASH MACULO-PAPULAR [None]
